FAERS Safety Report 9223641 (Version 1)
Quarter: 2013Q2

REPORT INFORMATION
  Report Type: Report from Study
  Country: DE (occurrence: DE)
  Receive Date: 20130410
  Receipt Date: 20130410
  Transmission Date: 20140414
  Serious: Yes (Death)
  Sender: FDA-Public Use
  Company Number: DE-GLAXOSMITHKLINE-B0882341A

PATIENT
  Age: 80 Year
  Sex: Male
  Weight: 77 kg

DRUGS (10)
  1. PAZOPANIB [Suspect]
     Indication: SARCOMA
     Dosage: 800MG PER DAY
     Dates: start: 20130325
  2. PANTOZOL [Concomitant]
     Dosage: 40MG PER DAY
     Route: 048
     Dates: end: 20130406
  3. DOXAZOSIN [Concomitant]
     Dosage: 4MG PER DAY
     Route: 048
     Dates: end: 20130406
  4. DISALUNIL [Concomitant]
     Dosage: 25MG PER DAY
     Route: 048
     Dates: end: 20130406
  5. ASS [Concomitant]
     Dosage: 100MG PER DAY
     Dates: end: 20130406
  6. NEURONTIN [Concomitant]
     Dosage: 3600MG PER DAY
     Route: 048
     Dates: end: 20130406
  7. FRAXIPARIN [Concomitant]
     Dosage: .3ML TWICE PER DAY
     Route: 058
     Dates: start: 20130406, end: 20130406
  8. MORPHINE [Concomitant]
     Route: 042
     Dates: start: 20130406, end: 20130407
  9. NOVAMINSULFON [Concomitant]
     Dosage: 5G TWICE PER DAY
     Route: 042
     Dates: start: 20130406, end: 20130407
  10. MOVICOL [Concomitant]
     Dosage: 1SAC PER DAY
     Route: 048
     Dates: end: 20130406

REACTIONS (1)
  - Neoplasm progression [Fatal]
